FAERS Safety Report 16438861 (Version 3)
Quarter: 2019Q2

REPORT INFORMATION
  Report Type: Spontaneous
  Country: CN (occurrence: CN)
  Receive Date: 20190617
  Receipt Date: 20190625
  Transmission Date: 20190711
  Serious: Yes (Other)
  Sender: FDA-Public Use
  Company Number: CN-TERSERA THERAPEUTICS LLC-2019TRS000983

PATIENT

DRUGS (4)
  1. CASODEX [Suspect]
     Active Substance: BICALUTAMIDE
     Indication: ENDOCRINE DISORDER
     Dosage: 50 MILLIGRAM, QD
     Route: 048
     Dates: start: 201810
  2. ZOLADEX [Suspect]
     Active Substance: GOSERELIN ACETATE
     Indication: PROSTATE CANCER
  3. ZOLADEX [Suspect]
     Active Substance: GOSERELIN ACETATE
     Indication: ENDOCRINE DISORDER
     Dosage: 3.6 MILLIGRAM, MONTHLY
     Route: 058
     Dates: start: 201810
  4. CASODEX [Suspect]
     Active Substance: BICALUTAMIDE
     Indication: PROSTATE CANCER

REACTIONS (1)
  - Malignant neoplasm progression [Not Recovered/Not Resolved]

NARRATIVE: CASE EVENT DATE: 201903
